FAERS Safety Report 4727347-3 (Version None)
Quarter: 2005Q3

REPORT INFORMATION
  Report Type: 
  Country: None (occurrence: None)
  Receive Date: 20050728
  Receipt Date: 20031219
  Transmission Date: 20060218
  Serious: Yes (Hospitalization)
  Sender: FDA-Public Use
  Company Number: FR-MERCK-0312FRA00079

PATIENT
  Age: 86 Year
  Sex: Female

DRUGS (2)
  1. STROMECTOL [Suspect]
     Indication: ACARODERMATITIS
     Route: 048
     Dates: start: 20031110, end: 20031110
  2. BENZYL BENZOATE [Concomitant]
     Indication: ACARODERMATITIS
     Route: 061
     Dates: start: 20031101, end: 20031101

REACTIONS (3)
  - ASTHMA [None]
  - CREPITATIONS [None]
  - SUPRAVENTRICULAR TACHYCARDIA [None]
